FAERS Safety Report 20564653 (Version 1)
Quarter: 2022Q1

REPORT INFORMATION
  Report Type: Spontaneous
  Country: JP (occurrence: JP)
  Receive Date: 20220308
  Receipt Date: 20220308
  Transmission Date: 20220423
  Serious: Yes (Hospitalization, Other)
  Sender: FDA-Public Use
  Company Number: JP-LUPIN PHARMACEUTICALS INC.-2022-03052

PATIENT
  Age: 82 Year
  Sex: Male

DRUGS (5)
  1. METFORMIN [Suspect]
     Active Substance: METFORMIN HYDROCHLORIDE
     Indication: Type 2 diabetes mellitus
     Dosage: 2000 MG, QD
     Route: 048
  2. METFORMIN [Suspect]
     Active Substance: METFORMIN HYDROCHLORIDE
     Dosage: 1000 MG, QD
     Route: 048
  3. DEXTROSE [Suspect]
     Active Substance: DEXTROSE
     Indication: Lactic acidosis
     Dosage: UNK
     Route: 065
  4. SITAGLIPTIN [Concomitant]
     Active Substance: SITAGLIPTIN
     Indication: Type 2 diabetes mellitus
     Dosage: 50 MG, QD
     Route: 065
  5. GLICLAZIDE [Concomitant]
     Active Substance: GLICLAZIDE
     Indication: Type 2 diabetes mellitus
     Dosage: 20 MG, QD
     Route: 065

REACTIONS (6)
  - Lactic acidosis [Recovering/Resolving]
  - Cardiac dysfunction [Recovering/Resolving]
  - Cardiac failure congestive [Recovering/Resolving]
  - Renal impairment [Recovering/Resolving]
  - Hyperkalaemia [Unknown]
  - Vitamin B1 deficiency [Recovering/Resolving]
